FAERS Safety Report 8821016 (Version 1)
Quarter: 2012Q4

REPORT INFORMATION
  Report Type: 
  Country: CN (occurrence: CN)
  Receive Date: 20121002
  Receipt Date: 20121002
  Transmission Date: 20130627
  Serious: Yes (Other)
  Sender: FDA-Public Use
  Company Number: CN-ASTRAZENECA-2012SE75092

PATIENT
  Age: 65 Year
  Sex: Female

DRUGS (1)
  1. ROPIVACAINE [Suspect]
     Indication: ANGLE CLOSURE GLAUCOMA
     Route: 056
     Dates: start: 20110412, end: 20110412

REACTIONS (1)
  - Amaurosis [Recovered/Resolved]
